FAERS Safety Report 4572280-3 (Version None)
Quarter: 2005Q1

REPORT INFORMATION
  Report Type: 
  Country: None (occurrence: None)
  Receive Date: 20050203
  Receipt Date: 20050120
  Transmission Date: 20050727
  Serious: Yes (Hospitalization)
  Sender: FDA-Public Use
  Company Number: 2005AP00375

PATIENT
  Age: 40 Year
  Sex: Female
  Weight: 55 kg

DRUGS (3)
  1. SEROQUEL [Suspect]
     Indication: SCHIZOPHRENIA
     Dosage: 100 MG DAILY PO
     Route: 048
     Dates: start: 20050108, end: 20050108
  2. SEROQUEL [Suspect]
     Indication: SCHIZOPHRENIA
     Dosage: 50 MG DAILY PO
     Route: 048
     Dates: start: 20050114
  3. CLOZARIL [Concomitant]

REACTIONS (2)
  - AZOTAEMIA [None]
  - BLOOD GLUCOSE INCREASED [None]
